FAERS Safety Report 22220393 (Version 1)
Quarter: 2023Q2

REPORT INFORMATION
  Report Type: Spontaneous
  Country: US (occurrence: US)
  Receive Date: 20230417
  Receipt Date: 20230417
  Transmission Date: 20230722
  Serious: No
  Sender: FDA-Public Use
  Company Number: US-009507513-2304USA005622

PATIENT
  Age: 21 Year
  Sex: Female

DRUGS (2)
  1. INTRON A [Suspect]
     Active Substance: INTERFERON ALFA-2B
     Indication: Laryngeal papilloma
     Dosage: UNK
     Dates: end: 20151230
  2. INTRON A [Suspect]
     Active Substance: INTERFERON ALFA-2B
     Indication: Respiratory papilloma

REACTIONS (1)
  - Product use in unapproved indication [Unknown]
